FAERS Safety Report 5420658-8 (Version None)
Quarter: 2007Q3

REPORT INFORMATION
  Report Type: 
  Country: None (occurrence: None)
  Receive Date: 20070821
  Receipt Date: 20070816
  Transmission Date: 20080115
  Serious: Yes (Disabling)
  Sender: FDA-Public Use
  Company Number: US-BRISTOL-MYERS SQUIBB COMPANY-13879911

PATIENT
  Age: 74 Year
  Sex: Female

DRUGS (6)
  1. ERBITUX [Suspect]
     Indication: NEOPLASM MALIGNANT
     Route: 042
     Dates: start: 20070606, end: 20070606
  2. BENADRYL [Concomitant]
     Route: 042
  3. SOLU-MEDROL [Concomitant]
     Route: 042
  4. SOLU-MEDROL [Concomitant]
     Route: 042
  5. DEXAMETHASONE 0.5MG TAB [Concomitant]
     Route: 042
  6. CIMETIDINE HCL [Concomitant]
     Route: 042

REACTIONS (4)
  - BLOOD PRESSURE DECREASED [None]
  - BURNING SENSATION [None]
  - MALAISE [None]
  - PARAESTHESIA ORAL [None]
